FAERS Safety Report 5031224-0 (Version None)
Quarter: 2006Q2

REPORT INFORMATION
  Report Type: 
  Country: None (occurrence: None)
  Receive Date: 20060621
  Receipt Date: 20060417
  Transmission Date: 20061013
  Serious: Yes (Hospitalization)
  Sender: FDA-Public Use
  Company Number: US-GLAXOSMITHKLINE-A0601956A

PATIENT

DRUGS (2)
  1. AVANDARYL [Suspect]
     Route: 048
  2. UNKNOWN [Concomitant]

REACTIONS (1)
  - HYPOGLYCAEMIA [None]
